FAERS Safety Report 6244930-7 (Version None)
Quarter: 2009Q2

REPORT INFORMATION
  Report Type: 
  Country: None (occurrence: None)
  Receive Date: 20090623
  Receipt Date: 20090623
  Transmission Date: 20091009
  Serious: No
  Sender: FDA-Public Use
  Company Number: None

PATIENT
  Sex: Male

DRUGS (2)
  1. MUCOMYST [Suspect]
     Indication: BLOOD CREATININE INCREASED
     Dosage: 600 MG BID X 3 DAYS PO
     Route: 048
     Dates: start: 20090602
  2. MUCOMYST [Suspect]

REACTIONS (1)
  - CIRCUMSTANCE OR INFORMATION CAPABLE OF LEADING TO MEDICATION ERROR [None]
